FAERS Safety Report 12712959 (Version 2)
Quarter: 2016Q3

REPORT INFORMATION
  Report Type: Spontaneous
  Country: US (occurrence: US)
  Receive Date: 20160902
  Receipt Date: 20160929
  Transmission Date: 20161109
  Serious: Yes (Other)
  Sender: FDA-Public Use
  Company Number: US-SMITH AND NEPHEW, INC-2016SMT00734

PATIENT
  Age: 58 Year
  Sex: Female
  Weight: 79.37 kg

DRUGS (10)
  1. LANTUS [Concomitant]
     Active Substance: INSULIN GLARGINE
     Dosage: 40 DOSAGE UNITS, 1X/DAY
  2. NEURONTIN [Concomitant]
     Active Substance: GABAPENTIN
     Dosage: 600 MG, 1X/DAY
  3. REGRANEX [Suspect]
     Active Substance: BECAPLERMIN
     Indication: DIABETIC ULCER
     Dosage: UNK, 1X/DAY
     Route: 061
     Dates: start: 201607
  4. REGRANEX [Suspect]
     Active Substance: BECAPLERMIN
     Dosage: UNK
     Route: 061
     Dates: start: 20160815
  5. WELLBUTRIN [Concomitant]
     Active Substance: BUPROPION HYDROCHLORIDE
     Dosage: 150 MG, 2X/DAY
  6. ASPIRIN. [Concomitant]
     Active Substance: ASPIRIN
     Dosage: 81 UNK, UNK
  7. RAMIPRIL. [Concomitant]
     Active Substance: RAMIPRIL
     Dosage: 2.5 MG, 1X/DAY
  8. GLIPIZIDE. [Concomitant]
     Active Substance: GLIPIZIDE
     Dosage: 15 MG, 1X/DAY
  9. METFORMIN [Concomitant]
     Active Substance: METFORMIN HYDROCHLORIDE
     Dosage: 1000 MG, 2X/DAY
  10. PLETAL [Concomitant]
     Active Substance: CILOSTAZOL
     Dosage: 100 MG, 2X/DAY

REACTIONS (5)
  - Staphylococcal infection [Recovered/Resolved]
  - Fungal infection [Recovered/Resolved]
  - Wound haemorrhage [Recovered/Resolved]
  - Purulent discharge [Recovered/Resolved]
  - Wound complication [Recovering/Resolving]

NARRATIVE: CASE EVENT DATE: 201607
